FAERS Safety Report 10223238 (Version 1)
Quarter: 2014Q2

REPORT INFORMATION
  Report Type: Spontaneous
  Country: US (occurrence: None)
  Receive Date: 20140606
  Receipt Date: 20140606
  Transmission Date: 20141212
  Serious: Yes (Other)
  Sender: FDA-Public Use
  Company Number: None

PATIENT
  Age: 70 Year
  Sex: Female
  Weight: 54.43 kg

DRUGS (1)
  1. BONIVA 150 MGS [Suspect]
     Indication: OSTEOPENIA
     Dosage: ONE TABLET, QD, ORAL
     Route: 048
     Dates: start: 20140601, end: 20140601

REACTIONS (5)
  - Myalgia [None]
  - Muscle spasms [None]
  - Pain [None]
  - Abasia [None]
  - Weight bearing difficulty [None]
